FAERS Safety Report 21723865 (Version 5)
Quarter: 2024Q4

REPORT INFORMATION
  Report Type: Spontaneous
  Country: US (occurrence: US)
  Receive Date: 20221213
  Receipt Date: 20241209
  Transmission Date: 20250115
  Serious: Yes (Death, Hospitalization, Other)
  Sender: PFIZER
  Company Number: US-PFIZER INC-PV202200122975

PATIENT
  Age: 79 Year
  Sex: Male

DRUGS (4)
  1. VYNDAMAX [Suspect]
     Active Substance: TAFAMIDIS
     Indication: Cardiac amyloidosis
     Dosage: 61 MG, 1X/DAY
     Dates: end: 20231114
  2. VYNDAMAX [Suspect]
     Active Substance: TAFAMIDIS
     Indication: Acquired ATTR amyloidosis
     Dosage: 61 MG, 1X/DAY
     Dates: start: 20231118
  3. LASIX [Concomitant]
     Active Substance: FUROSEMIDE
     Indication: Weight increased
     Dosage: 20 MILLIGRAM
  4. LASIX [Concomitant]
     Active Substance: FUROSEMIDE
     Indication: Blood pressure abnormal

REACTIONS (4)
  - Death [Fatal]
  - Periprosthetic fracture [Unknown]
  - Fall [Unknown]
  - Gout [Unknown]

NARRATIVE: CASE EVENT DATE: 20220101
